FAERS Safety Report 26004440 (Version 2)
Quarter: 2025Q4

REPORT INFORMATION
  Report Type: Report from Study
  Country: KR (occurrence: KR)
  Receive Date: 20251106
  Receipt Date: 20251124
  Transmission Date: 20260117
  Serious: Yes (Other)
  Sender: JAZZ
  Company Number: KR-BR-LTD-OS-401-011-003

PATIENT
  Age: 77 Year
  Sex: Male
  Weight: 71.6 kg

DRUGS (39)
  1. LURBINECTEDIN [Suspect]
     Active Substance: LURBINECTEDIN
     Indication: Small cell lung cancer
     Dosage: 2.2 MILLIGRAM PER SQUARE METER
     Dates: start: 20250708, end: 20250902
  2. LURBINECTEDIN [Suspect]
     Active Substance: LURBINECTEDIN
     Dosage: 3.2 MILLIGRAM PER SQUARE METER
  3. LURBINECTEDIN [Suspect]
     Active Substance: LURBINECTEDIN
     Dosage: 3.2 MILLIGRAM PER SQUARE METER
  4. LURBINECTEDIN [Suspect]
     Active Substance: LURBINECTEDIN
     Dosage: 2.7 MILLIGRAM PER SQUARE METER
  5. SYNTHROID [Concomitant]
     Active Substance: LEVOTHYROXINE SODIUM
     Indication: Thyroid cancer
     Dosage: 0.1 MILLIGRAM
  6. ZOLPIDEM TARTRATE [Concomitant]
     Active Substance: ZOLPIDEM TARTRATE
     Indication: Insomnia
     Dosage: 10 MILLIGRAM
     Dates: start: 20230608, end: 20250420
  7. ZOLPIDEM TARTRATE [Concomitant]
     Active Substance: ZOLPIDEM TARTRATE
     Dosage: 5 MILLIGRAM
  8. HYDROCHLOROTHIAZIDE\TELMISARTAN [Concomitant]
     Active Substance: HYDROCHLOROTHIAZIDE\TELMISARTAN
     Indication: Hypertension
     Dosage: 52.5 MILLIGRAM
  9. ROEZE [Concomitant]
     Indication: Hyperlipidaemia
     Dosage: 15 MILLIGRAM
  10. UMECLIDINIUM BROMIDE\VILANTEROL TRIFENATATE [Concomitant]
     Active Substance: UMECLIDINIUM BROMIDE\VILANTEROL TRIFENATATE
     Indication: Chronic obstructive pulmonary disease
     Dosage: 87.5 MICROGRAM
  11. AMINO ACIDS\DEXTROSE\ELECTROLYTES NOS\SOYBEAN OIL\VITAMINS [Concomitant]
     Active Substance: AMINO ACIDS\DEXTROSE\ELECTROLYTES NOS\SOYBEAN OIL\VITAMINS
     Indication: Prophylaxis
     Dosage: 1450 MILLILITER
     Dates: start: 20250305, end: 20250305
  12. AMINO ACIDS\DEXTROSE\ELECTROLYTES NOS\SOYBEAN OIL\VITAMINS [Concomitant]
     Active Substance: AMINO ACIDS\DEXTROSE\ELECTROLYTES NOS\SOYBEAN OIL\VITAMINS
     Dosage: 1450 MICROGRAM
     Dates: start: 20250326, end: 20250326
  13. AMINO ACIDS\DEXTROSE\ELECTROLYTES NOS\SOYBEAN OIL\VITAMINS [Concomitant]
     Active Substance: AMINO ACIDS\DEXTROSE\ELECTROLYTES NOS\SOYBEAN OIL\VITAMINS
     Dosage: 654 MILLILITER
  14. AMINO ACIDS\DEXTROSE\ELECTROLYTES NOS\SOYBEAN OIL\VITAMINS [Concomitant]
     Active Substance: AMINO ACIDS\DEXTROSE\ELECTROLYTES NOS\SOYBEAN OIL\VITAMINS
     Dosage: 1 DOSAGE FORM
     Dates: start: 20250521, end: 20250521
  15. ALOXI [Concomitant]
     Active Substance: PALONOSETRON HYDROCHLORIDE
     Indication: Prophylaxis
     Dosage: 5 MILLILITER
     Dates: start: 20250305, end: 20250305
  16. ALOXI [Concomitant]
     Active Substance: PALONOSETRON HYDROCHLORIDE
     Dosage: 5 MILLILITER
     Dates: start: 20250326, end: 20250326
  17. YUHAN DEXAMETHASONE DISODIUM PHOSPHATE [Concomitant]
     Indication: Prophylaxis
     Dosage: 8 MILLIGRAM
     Dates: start: 20250305, end: 20250305
  18. YUHAN DEXAMETHASONE DISODIUM PHOSPHATE [Concomitant]
     Dosage: 8 MILLIGRAM
     Dates: start: 20250326, end: 20250326
  19. YUHAN DEXAMETHASONE DISODIUM PHOSPHATE [Concomitant]
     Dosage: 5 MILLIGRAM
     Dates: start: 20250422, end: 20250422
  20. YUHAN DEXAMETHASONE DISODIUM PHOSPHATE [Concomitant]
     Dosage: 10 MILLIGRAM
     Dates: start: 20250521, end: 20250521
  21. YUHAN DEXAMETHASONE DISODIUM PHOSPHATE [Concomitant]
     Dosage: 10 MILLIGRAM
     Dates: start: 20250708, end: 20250708
  22. MEDILAC DS [Concomitant]
     Indication: Prophylaxis
     Dosage: 250 MILLIGRAM
  23. CLAMONEX DUO [Concomitant]
     Indication: Prophylaxis
     Dosage: 500 MILLIGRAM
  24. MACPERAN [METOCLOPRAMIDE HYDROCHLORIDE] [Concomitant]
     Indication: Prophylaxis
     Dosage: 5 MILLIGRAM
  25. FILGRASTIM [Concomitant]
     Active Substance: FILGRASTIM
     Indication: Prophylaxis
     Dosage: 300 MICROGRAM
  26. FILGRASTIM [Concomitant]
     Active Substance: FILGRASTIM
     Dosage: 1 DOSAGE FORM
     Dates: start: 20250430, end: 20250430
  27. WINUF [Concomitant]
     Indication: Prophylaxis
     Dosage: 654 MILLILITER
     Dates: start: 20250305, end: 20250305
  28. WINUF [Concomitant]
     Dosage: UNK
     Dates: start: 20250422, end: 20250422
  29. WINUF [Concomitant]
     Dosage: 1 DOSAGE FORM
     Dates: start: 20250521, end: 20250521
  30. ONDANT [Concomitant]
     Indication: Prophylaxis
     Dosage: 8 MILLIGRAM
     Dates: start: 20250422, end: 20250422
  31. ONDANT [Concomitant]
     Indication: Nausea
     Dosage: 1 DOSAGE FORM
     Dates: start: 20250521, end: 20250521
  32. SYNATURA [Concomitant]
     Indication: Prophylaxis
     Dosage: 1 DOSAGE FORM
  33. YUHAN DEXAMETHASONE DISODIUM PHOSPHATE [Concomitant]
     Dosage: 8 MILLIGRAM
     Dates: start: 20250305, end: 20250305
  34. YUHAN DEXAMETHASONE DISODIUM PHOSPHATE [Concomitant]
     Dosage: 8 MILLIGRAM
     Dates: start: 20250326, end: 20250326
  35. YUHAN DEXAMETHASONE DISODIUM PHOSPHATE [Concomitant]
     Dosage: 5 MILLIGRAM
     Dates: start: 20250422, end: 20250422
  36. YUHAN DEXAMETHASONE DISODIUM PHOSPHATE [Concomitant]
     Dosage: 10 MILLIGRAM
     Dates: start: 20250521, end: 20250521
  37. YUHAN DEXAMETHASONE DISODIUM PHOSPHATE [Concomitant]
     Dosage: 10 MILLIGRAM
     Dates: start: 20250708, end: 20250708
  38. PALONOSETRON [Concomitant]
     Active Substance: PALONOSETRON
     Indication: Prophylaxis
     Dosage: 5 MILLILITER
  39. DEXAMETHASONE [Concomitant]
     Active Substance: DEXAMETHASONE
     Indication: Prophylaxis
     Dosage: 10 MILLIGRAM

REACTIONS (3)
  - Pancytopenia [Recovered/Resolved]
  - Nausea [Not Recovered/Not Resolved]
  - Asthenia [Not Recovered/Not Resolved]

NARRATIVE: CASE EVENT DATE: 20250422
